FAERS Safety Report 9253344 (Version 1)
Quarter: 2013Q2

REPORT INFORMATION
  Report Type: Spontaneous
  Country: US (occurrence: US)
  Receive Date: 20130424
  Receipt Date: 20130424
  Transmission Date: 20140414
  Serious: Yes (Hospitalization)
  Sender: FDA-Public Use
  Company Number: US-BRISTOL-MYERS SQUIBB COMPANY-18787523

PATIENT
  Age: 64 Year
  Sex: Male

DRUGS (1)
  1. BYETTA [Suspect]

REACTIONS (2)
  - Spinal disorder [Unknown]
  - Blood glucose increased [Recovered/Resolved]
